FAERS Safety Report 22247565 (Version 1)
Quarter: 2023Q2

REPORT INFORMATION
  Report Type: Report from Study
  Country: US (occurrence: US)
  Receive Date: 20230425
  Receipt Date: 20230425
  Transmission Date: 20230721
  Serious: Yes (Death)
  Sender: FDA-Public Use
  Company Number: US-ABBVIE-4740356

PATIENT
  Sex: Female
  Weight: 63.502 kg

DRUGS (1)
  1. CREON [Suspect]
     Active Substance: PANCRELIPASE AMYLASE\PANCRELIPASE LIPASE\PANCRELIPASE PROTEASE
     Indication: Pancreatic carcinoma
     Dosage: TIME INTERVAL: 0.33333333 DAYS: FORM STRENGTH: 24000 UNIT
     Route: 048
     Dates: start: 2022, end: 20230310

REACTIONS (1)
  - Pancreatic carcinoma [Fatal]
